FAERS Safety Report 17075186 (Version 1)
Quarter: 2019Q4

REPORT INFORMATION
  Report Type: Spontaneous
  Country: AU (occurrence: AU)
  Receive Date: 20191126
  Receipt Date: 20191126
  Transmission Date: 20200122
  Serious: Yes (Other)
  Sender: FDA-Public Use
  Company Number: AU-PFIZER INC-PHA2002126468AU

PATIENT
  Age: 75 Year
  Sex: Female

DRUGS (4)
  1. GEMFIBROZIL. [Interacting]
     Active Substance: GEMFIBROZIL
     Dosage: UNK
  2. CELEBREX [Suspect]
     Active Substance: CELECOXIB
     Dosage: UNK
  3. VERAPAMIL HCL [Interacting]
     Active Substance: VERAPAMIL HYDROCHLORIDE
     Dosage: UNK
  4. SIMVASTATIN. [Interacting]
     Active Substance: SIMVASTATIN
     Dosage: 80 MG, 1X/DAY

REACTIONS (3)
  - Rhabdomyolysis [Recovered/Resolved]
  - Drug interaction [Unknown]
  - Myopathy toxic [Unknown]
